FAERS Safety Report 18623090 (Version 1)
Quarter: 2020Q4

REPORT INFORMATION
  Report Type: Spontaneous
  Country: US (occurrence: US)
  Receive Date: 20201215
  Receipt Date: 20201215
  Transmission Date: 20210114
  Serious: Yes (Death, Life-Threatening)
  Sender: FDA-Public Use
  Company Number: None

PATIENT
  Age: 77 Year
  Sex: Male
  Weight: 72.9 kg

DRUGS (1)
  1. VANCOMYCIN 1000MG (500MG X 2) [Suspect]
     Active Substance: VANCOMYCIN HYDROCHLORIDE
     Indication: SKIN INFECTION
     Route: 042
     Dates: start: 20201125, end: 20201125

REACTIONS (2)
  - Unresponsive to stimuli [None]
  - Malaise [None]

NARRATIVE: CASE EVENT DATE: 20201125
